FAERS Safety Report 5811970-9 (Version None)
Quarter: 2008Q3

REPORT INFORMATION
  Report Type: 
  Country: None (occurrence: None)
  Receive Date: 20080716
  Receipt Date: 20080709
  Transmission Date: 20090109
  Serious: Yes (Death, Hospitalization, Other)
  Sender: FDA-Public Use
  Company Number: US-BAXTER-2008BH006840

PATIENT
  Age: 64 Year
  Sex: Female

DRUGS (12)
  1. HEPARIN SODIUM INJECTION [Suspect]
     Indication: ANTICOAGULANT THERAPY
     Route: 040
     Dates: start: 20080213, end: 20080213
  2. HEPARIN SODIUM INJECTION [Suspect]
     Route: 065
     Dates: start: 20080212, end: 20080212
  3. HEPARIN SODIUM INJECTION [Suspect]
     Route: 065
     Dates: start: 20080212, end: 20080212
  4. HEPARIN SODIUM INJECTION [Suspect]
     Route: 065
     Dates: start: 20080212, end: 20080212
  5. HEPARIN SODIUM INJECTION [Suspect]
     Route: 065
     Dates: start: 20080212, end: 20080212
  6. HEPARIN SODIUM INJECTION [Suspect]
     Route: 065
     Dates: start: 20080212, end: 20080212
  7. HEPARIN [Suspect]
     Indication: ANTICOAGULANT THERAPY
     Dosage: DOSE UNIT:UNKNOWN
     Route: 041
     Dates: start: 20080214, end: 20080101
  8. RYTHMOL [Suspect]
     Indication: DRUG USE FOR UNKNOWN INDICATION
     Route: 065
     Dates: start: 20080212, end: 20080212
  9. RYTHMOL [Suspect]
     Dosage: DOSE UNIT:UNKNOWN
     Route: 065
     Dates: start: 20080213, end: 20080213
  10. NITROGLYCERIN [Concomitant]
     Indication: DRUG USE FOR UNKNOWN INDICATION
     Dosage: DOSE UNIT:UNKNOWN
     Route: 061
     Dates: start: 20080212, end: 20080213
  11. LEVOPHED [Concomitant]
     Indication: DRUG USE FOR UNKNOWN INDICATION
     Dosage: DOSE UNIT:UNKNOWN
     Route: 065
     Dates: start: 20060213
  12. DOPAMINE HCL [Concomitant]
     Indication: DRUG USE FOR UNKNOWN INDICATION
     Dosage: DOSE UNIT:UNKNOWN
     Route: 065
     Dates: start: 20080213

REACTIONS (21)
  - ASTHENIA [None]
  - CARDIAC ARREST [None]
  - CARDIAC FAILURE [None]
  - DIZZINESS [None]
  - DYSPNOEA [None]
  - ELECTROLYTE IMBALANCE [None]
  - HYPERHIDROSIS [None]
  - HYPOPERFUSION [None]
  - HYPOTENSION [None]
  - ISCHAEMIC CARDIOMYOPATHY [None]
  - LEUKOCYTOSIS [None]
  - LOSS OF CONSCIOUSNESS [None]
  - METABOLIC ACIDOSIS [None]
  - NAUSEA [None]
  - ORGAN FAILURE [None]
  - PALPITATIONS [None]
  - PULMONARY OEDEMA [None]
  - RENAL FAILURE [None]
  - RENAL FAILURE CHRONIC [None]
  - UNRESPONSIVE TO STIMULI [None]
  - VENTRICULAR TACHYCARDIA [None]
